FAERS Safety Report 6235732-6 (Version None)
Quarter: 2009Q2

REPORT INFORMATION
  Report Type: 
  Country: None (occurrence: None)
  Receive Date: 20090619
  Receipt Date: 20071008
  Transmission Date: 20091009
  Serious: Yes (Other)
  Sender: FDA-Public Use
  Company Number: US-ASTRAZENECA-2006UW23067

PATIENT
  Age: 53 Year
  Sex: Female
  Weight: 74.8 kg

DRUGS (15)
  1. SEROQUEL [Suspect]
     Indication: DEPRESSION
     Route: 048
     Dates: start: 20030101, end: 20040101
  2. SEROQUEL [Suspect]
     Indication: BIPOLAR DISORDER
     Route: 048
     Dates: start: 20030101, end: 20040101
  3. SEROQUEL [Suspect]
     Indication: ANXIETY
     Route: 048
     Dates: start: 20030101, end: 20040101
  4. SEROQUEL [Suspect]
     Dosage: 25 TO 100 MG
     Route: 048
     Dates: start: 20050419
  5. SEROQUEL [Suspect]
     Dosage: 25 TO 100 MG
     Route: 048
     Dates: start: 20050419
  6. SEROQUEL [Suspect]
     Dosage: 25 TO 100 MG
     Route: 048
     Dates: start: 20050419
  7. AMITRIPTYLINE [Concomitant]
     Dosage: 100 TO 150 MG
     Route: 048
     Dates: start: 20050104
  8. HYDROCODONE BITARTRATE [Concomitant]
     Route: 048
     Dates: start: 20050104
  9. ACYCLOVIR [Concomitant]
     Route: 048
     Dates: start: 20050104
  10. MORPHINE SULFATE [Concomitant]
     Route: 048
     Dates: start: 20050104
  11. LIPITOR [Concomitant]
     Route: 048
     Dates: start: 20050104
  12. METOPROLOL SUCCINATE [Concomitant]
     Route: 048
     Dates: start: 20050104
  13. FUROSEMIDE [Concomitant]
     Route: 048
     Dates: start: 20050104
  14. HYDROXYZINE HYDROCHLORIDE [Concomitant]
     Dosage: 25 MG 1 TO 2 PRN
     Route: 048
     Dates: start: 20050104
  15. CYCLOBENZAPRINE HCL [Concomitant]
     Indication: PAIN
     Route: 048
     Dates: start: 20050104

REACTIONS (3)
  - DIABETES MELLITUS [None]
  - MULTIPLE INJURIES [None]
  - NEUROPATHY PERIPHERAL [None]
